FAERS Safety Report 6028367-1 (Version None)
Quarter: 2009Q1

REPORT INFORMATION
  Report Type: 
  Country: None (occurrence: None)
  Receive Date: 20090106
  Receipt Date: 20081229
  Transmission Date: 20090719
  Serious: Yes (Hospitalization, Other)
  Sender: FDA-Public Use
  Company Number: PHHY2008MX33479

PATIENT
  Age: 80 Year
  Sex: Male

DRUGS (2)
  1. STALEVO 100 [Suspect]
     Indication: PARKINSON'S DISEASE
     Dosage: 3 TABLETS DAILY
     Route: 048
     Dates: start: 20080201
  2. KEPPRA [Concomitant]

REACTIONS (3)
  - NERVOUS SYSTEM DISORDER [None]
  - PNEUMONIA [None]
  - PULMONARY OEDEMA [None]
